FAERS Safety Report 9026805 (Version 2)
Quarter: 2013Q1

REPORT INFORMATION
  Report Type: Spontaneous
  Country: JP (occurrence: JP)
  Receive Date: 20130123
  Receipt Date: 20130219
  Transmission Date: 20140127
  Serious: Yes (Other)
  Sender: FDA-Public Use
  Company Number: JP-VERTEX PHARMACEUTICALS INC.-2012-026086

PATIENT
  Age: 63 Year
  Sex: Male

DRUGS (12)
  1. TELAVIC [Suspect]
     Indication: CHRONIC HEPATITIS C
     Dosage: 2250 MG, QD
     Route: 048
     Dates: start: 20121106, end: 20121112
  2. REBETOL [Suspect]
     Indication: CHRONIC HEPATITIS C
     Dosage: 800 MG, QD
     Route: 048
     Dates: start: 20121106, end: 20121112
  3. REBETOL [Suspect]
     Dosage: 800 MG, QD
     Route: 048
     Dates: start: 20121120, end: 20121126
  4. REBETOL [Suspect]
     Dosage: 600 MG, QD
     Route: 048
     Dates: start: 20121127, end: 20121203
  5. REBETOL [Suspect]
     Dosage: 400 MG, UNK
     Route: 048
     Dates: start: 20121204
  6. PEGINTRON [Concomitant]
     Dosage: 1.5 ?G/KG, QW
     Route: 058
     Dates: start: 20121106, end: 20121112
  7. PEGINTRON [Concomitant]
     Dosage: 1.5 ?G/KG, QW
     Route: 058
     Dates: start: 20121120, end: 20121127
  8. PEGINTRON [Concomitant]
     Dosage: 0.71 ?G/KG, QW
     Route: 058
     Dates: start: 20121204
  9. ACTOS [Concomitant]
     Dosage: 30 MG, QD
     Route: 048
  10. JANUVIA [Concomitant]
     Dosage: 50 MG, QD
     Route: 048
  11. METGLUCO [Concomitant]
     Dosage: 750 MG, QD
     Route: 048
  12. URSO [Concomitant]
     Dosage: 600 MG, QD
     Route: 048
     Dates: start: 20121112, end: 20121119

REACTIONS (5)
  - Jaundice [Recovered/Resolved]
  - Rash [Recovered/Resolved]
  - Hyperuricaemia [Recovered/Resolved]
  - Haemoglobin decreased [Not Recovered/Not Resolved]
  - Platelet count increased [Recovered/Resolved]
